FAERS Safety Report 12731327 (Version 1)
Quarter: 2016Q3

REPORT INFORMATION
  Report Type: Spontaneous
  Country: TR (occurrence: TR)
  Receive Date: 20160912
  Receipt Date: 20160912
  Transmission Date: 20161109
  Serious: Yes (Other)
  Sender: FDA-Public Use
  Company Number: TR-BAXALTA-2014BAX022596

PATIENT
  Age: 9 Year
  Sex: Male

DRUGS (2)
  1. IMMUNIN [Suspect]
     Active Substance: COAGULATION FACTOR IX HUMAN
     Indication: FACTOR IX DEFICIENCY
     Dosage: UNK
     Route: 065
  2. RECOMBINANT FACTOR VIIA [Suspect]
     Active Substance: COAGULATION FACTOR VIIA RECOMBINANT HUMAN
     Indication: FACTOR IX DEFICIENCY
     Dosage: UNK
     Route: 065

REACTIONS (2)
  - Factor IX inhibition [Unknown]
  - Haemorrhagic diathesis [Unknown]
